FAERS Safety Report 19881119 (Version 1)
Quarter: 2021Q3

REPORT INFORMATION
  Report Type: Spontaneous
  Country: US (occurrence: US)
  Receive Date: 20210924
  Receipt Date: 20210924
  Transmission Date: 20211014
  Serious: No
  Sender: FDA-Public Use
  Company Number: US-PFIZER INC-2021470042

PATIENT
  Age: 52 Year

DRUGS (10)
  1. DIAZEPAM. [Suspect]
     Active Substance: DIAZEPAM
  2. MEDROL [Suspect]
     Active Substance: METHYLPREDNISOLONE
  3. HYDROCHLOROTHIAZIDE. [Suspect]
     Active Substance: HYDROCHLOROTHIAZIDE
  4. EDARBI [Suspect]
     Active Substance: AZILSARTAN KAMEDOXOMIL
  5. GABAPENTIN. [Suspect]
     Active Substance: GABAPENTIN
  6. FLEXERIL [CEFIXIME] [Suspect]
     Active Substance: CEFIXIME
  7. PHENERGAN [Suspect]
     Active Substance: PROMETHAZINE HYDROCHLORIDE
  8. LYRICA [Suspect]
     Active Substance: PREGABALIN
  9. CLARINEX [Suspect]
     Active Substance: DESLORATADINE
  10. PROCHLORPERAZINE. [Suspect]
     Active Substance: PROCHLORPERAZINE

REACTIONS (1)
  - Drug hypersensitivity [Unknown]
